FAERS Safety Report 16188721 (Version 4)
Quarter: 2019Q2

REPORT INFORMATION
  Report Type: Spontaneous
  Country: US (occurrence: US)
  Receive Date: 20190412
  Receipt Date: 20190625
  Transmission Date: 20190711
  Serious: No
  Sender: FDA-Public Use
  Company Number: US-BIOGEN-2019BI00719569

PATIENT
  Age: 55 Year
  Sex: Female

DRUGS (5)
  1. TYSABRI [Suspect]
     Active Substance: NATALIZUMAB
     Route: 065
     Dates: start: 20150717
  2. TYSABRI [Suspect]
     Active Substance: NATALIZUMAB
     Dates: start: 20150717, end: 20190123
  3. TYSABRI [Suspect]
     Active Substance: NATALIZUMAB
     Dates: start: 20090804, end: 20150714
  4. TYSABRI [Suspect]
     Active Substance: NATALIZUMAB
     Indication: MULTIPLE SCLEROSIS
     Route: 042
     Dates: start: 20090804, end: 20150714
  5. TYSABRI [Suspect]
     Active Substance: NATALIZUMAB
     Dates: start: 20070815, end: 20081110

REACTIONS (9)
  - Mammogram abnormal [Unknown]
  - Nausea [Recovered/Resolved]
  - Influenza [Recovered/Resolved]
  - Pyrexia [Recovered/Resolved]
  - Asthenia [Not Recovered/Not Resolved]
  - Product dose omission [Recovered/Resolved]
  - Decreased appetite [Not Recovered/Not Resolved]
  - Herpes zoster [Not Recovered/Not Resolved]
  - Headache [Not Recovered/Not Resolved]

NARRATIVE: CASE EVENT DATE: 20190115
